FAERS Safety Report 6781017-9 (Version None)
Quarter: 2010Q2

REPORT INFORMATION
  Report Type: 
  Country: None (occurrence: None)
  Receive Date: 20100615
  Receipt Date: 20100602
  Transmission Date: 20101027
  Serious: Yes (Hospitalization)
  Sender: FDA-Public Use
  Company Number: 20108539

PATIENT
  Age: 28 Year
  Sex: Female
  Weight: 55.2 kg

DRUGS (2)
  1. BACLOFEN [Suspect]
     Indication: MUSCLE SPASTICITY
     Dosage: MCG, DAILY, INTRATHECAL
     Route: 037
  2. DANTRIUM [Concomitant]

REACTIONS (1)
  - WOUND DEHISCENCE [None]
